FAERS Safety Report 6582667-5 (Version None)
Quarter: 2010Q1

REPORT INFORMATION
  Report Type: 
  Country: None (occurrence: None)
  Receive Date: 20100212
  Receipt Date: 20100212
  Transmission Date: 20100710
  Serious: Yes (Hospitalization)
  Sender: FDA-Public Use
  Company Number: None

PATIENT
  Age: 67 Year
  Sex: Male
  Weight: 146.6 kg

DRUGS (2)
  1. DOXORUBICIN HCL [Suspect]
     Indication: BLADDER CANCER
     Dosage: 50 MG QWEEK IV
     Route: 042
     Dates: start: 20091124, end: 20091124
  2. VINBLASTINE [Suspect]
     Indication: BLADDER CANCER
     Dosage: 5 MG QWEEK SQ
     Route: 058
     Dates: start: 20091124, end: 20091124

REACTIONS (5)
  - ASTHENIA [None]
  - DEHYDRATION [None]
  - LEUKOPENIA [None]
  - NAUSEA [None]
  - VOMITING [None]
